FAERS Safety Report 21024073 (Version 2)
Quarter: 2024Q3

REPORT INFORMATION
  Report Type: Report from Study
  Country: US (occurrence: US)
  Receive Date: 20220629
  Receipt Date: 20240801
  Transmission Date: 20241017
  Serious: No
  Sender: KYOWA
  Company Number: US-KYOWAKIRIN-2022BKK009623

PATIENT

DRUGS (11)
  1. BUROSUMAB [Suspect]
     Active Substance: BUROSUMAB
     Indication: Hereditary hypophosphataemic rickets
     Dosage: 70 MG, 1X/4 WEEKS (CRYSVITA DOSE AND ROUTE: (1 X 10 MG ) AND (2 X 30 MG) TO EQUAL A TOTAL OF 70 MG)
     Route: 058
  2. BUROSUMAB [Suspect]
     Active Substance: BUROSUMAB
     Indication: Hereditary hypophosphataemic rickets
     Dosage: 70 MG, 1X/4 WEEKS (CRYSVITA DOSE AND ROUTE: (1 X 10 MG ) AND (2 X 30 MG) TO EQUAL A TOTAL OF 70 MG)
     Route: 058
  3. BUROSUMAB [Suspect]
     Active Substance: BUROSUMAB
     Indication: Product used for unknown indication
     Dosage: UNK, 1X/4 WEEKS
     Route: 065
     Dates: start: 20220217
  4. BUROSUMAB [Suspect]
     Active Substance: BUROSUMAB
     Dosage: 70 MG, 1X/4 WEEKS
     Route: 065
  5. BUROSUMAB [Suspect]
     Active Substance: BUROSUMAB
     Dosage: 80 MG, 1X/4 WEEKS
     Route: 065
  6. NAPHAZOLINE HYDROCHLORIDE [Concomitant]
     Active Substance: NAPHAZOLINE HYDROCHLORIDE
     Indication: Product used for unknown indication
     Dosage: DRY EYE RELIEF 0.3 %-0.4% DROPS GEL
     Route: 065
  7. CELECOXIB [Concomitant]
     Active Substance: CELECOXIB
     Indication: Product used for unknown indication
     Dosage: 100 MG
     Route: 065
  8. ESCITALOPRAM OXALATE [Concomitant]
     Active Substance: ESCITALOPRAM OXALATE
     Indication: Product used for unknown indication
     Dosage: 10 MG
     Route: 065
  9. ALBUTEROL SULFATE [Concomitant]
     Active Substance: ALBUTEROL SULFATE
     Indication: Product used for unknown indication
     Dosage: UNK
     Route: 065
  10. FLONASE ALLERGY RELIEF [Concomitant]
     Active Substance: FLUTICASONE PROPIONATE
     Indication: Product used for unknown indication
     Dosage: UNK
     Route: 065
  11. ALLEGRA D-12 HOUR [Concomitant]
     Active Substance: FEXOFENADINE HYDROCHLORIDE\PSEUDOEPHEDRINE HYDROCHLORIDE
     Indication: Product used for unknown indication
     Dosage: UNK
     Route: 065

REACTIONS (2)
  - Malaise [Unknown]
  - Incorrect dose administered [Unknown]
